FAERS Safety Report 6678657-4 (Version None)
Quarter: 2010Q2

REPORT INFORMATION
  Report Type: 
  Country: None (occurrence: None)
  Receive Date: 20100413
  Receipt Date: 20100401
  Transmission Date: 20101027
  Serious: Yes (Hospitalization)
  Sender: FDA-Public Use
  Company Number: GB-PFIZER INC-2007062962

PATIENT
  Age: 40 Year
  Sex: Male

DRUGS (7)
  1. SUNITINIB MALATE [Suspect]
     Indication: RENAL CELL CARCINOMA
     Dosage: 50 MG, DAILY, CYCLIC
     Route: 048
     Dates: start: 20060601
  2. SALBUTAMOL [Concomitant]
     Dosage: UNK
  3. BECOTIDE [Concomitant]
     Dosage: UNK
  4. CITALOPRAM HYDROBROMIDE [Concomitant]
     Dosage: UNK
     Route: 048
     Dates: start: 20060718
  5. ZOLEDRONIC ACID [Concomitant]
     Dosage: UNK
     Route: 042
     Dates: start: 20060701
  6. AMLODIPINE [Concomitant]
     Dosage: UNK
     Dates: start: 20060707
  7. LANSOPRAZOLE [Concomitant]
     Dosage: UNK

REACTIONS (3)
  - LETHARGY [None]
  - NAUSEA [None]
  - VOMITING [None]
